FAERS Safety Report 8796041 (Version 2)
Quarter: 2012Q4

REPORT INFORMATION
  Report Type: 
  Country: US (occurrence: US)
  Receive Date: 20120919
  Receipt Date: 20121218
  Transmission Date: 20130627
  Serious: Yes (Other)
  Sender: FDA-Public Use
  Company Number: US-JNJFOC-20120902171

PATIENT
  Age: 75 Year
  Sex: Female
  Weight: 72.58 kg

DRUGS (4)
  1. EVICEL [Suspect]
     Indication: HAEMOSTASIS
     Route: 061
     Dates: start: 20120622, end: 20120622
  2. LOCAL HAEMOSTATICS [Concomitant]
     Indication: HAEMOSTASIS
     Route: 050
     Dates: start: 20120622, end: 20120622
  3. LIDOCAINE [Concomitant]
     Dosage: with epi
     Dates: start: 20120622, end: 20120622
  4. EPINEPHRINE [Concomitant]
     Route: 065

REACTIONS (5)
  - Postoperative abscess [Recovering/Resolving]
  - Post procedural infection [Recovering/Resolving]
  - Lethargy [Recovering/Resolving]
  - Paraesthesia [Recovering/Resolving]
  - Diarrhoea [Recovering/Resolving]
